FAERS Safety Report 7786689-8 (Version None)
Quarter: 2011Q3

REPORT INFORMATION
  Report Type: 
  Country: None (occurrence: None)
  Receive Date: 20110929
  Receipt Date: 20110928
  Transmission Date: 20111222
  Serious: No
  Sender: FDA-Public Use
  Company Number: US-PFIZER INC-2011231588

PATIENT
  Sex: Female
  Weight: 72.562 kg

DRUGS (2)
  1. ZOLOFT [Suspect]
     Dosage: UNK
     Route: 048
  2. ZOLOFT [Suspect]
     Indication: DEPRESSION
     Dosage: 100 MG, 1X/DAY
     Route: 048
     Dates: start: 20100101

REACTIONS (1)
  - DRUG SCREEN FALSE POSITIVE [None]
